FAERS Safety Report 24432758 (Version 1)
Quarter: 2024Q4

REPORT INFORMATION
  Report Type: Spontaneous
  Country: ES (occurrence: ES)
  Receive Date: 20241014
  Receipt Date: 20241014
  Transmission Date: 20250115
  Serious: Yes (Other)
  Sender: BOEHRINGER INGELHEIM
  Company Number: None

PATIENT
  Age: 87 Year
  Sex: Male
  Weight: 66 kg

DRUGS (4)
  1. LINAGLIPTIN [Suspect]
     Active Substance: LINAGLIPTIN
     Indication: Type 2 diabetes mellitus
     Route: 048
     Dates: start: 20240727, end: 20240926
  2. DAPAGLIFLOZIN [Concomitant]
     Active Substance: DAPAGLIFLOZIN
     Indication: Type 2 diabetes mellitus
     Route: 048
     Dates: start: 20220127
  3. PARACETAMOL CINFA 1 g COMPRIMIDOS EFG , 40 comprimidos [Concomitant]
     Indication: Product used for unknown indication
     Dosage: BREAKFAST LUNCH DINNER
     Route: 048
     Dates: start: 20230525
  4. ASPIRIN [Concomitant]
     Active Substance: ASPIRIN
     Indication: Type 2 diabetes mellitus
     Dosage: BREAKFAST
     Route: 048
     Dates: start: 20090326

REACTIONS (2)
  - Diarrhoea [Recovered/Resolved]
  - Anal incontinence [Recovered/Resolved]

NARRATIVE: CASE EVENT DATE: 20240728
